FAERS Safety Report 9381828 (Version 1)
Quarter: 2013Q3

REPORT INFORMATION
  Report Type: Report from Study
  Country: CA (occurrence: CA)
  Receive Date: 20130703
  Receipt Date: 20130703
  Transmission Date: 20140515
  Serious: Yes (Other)
  Sender: FDA-Public Use
  Company Number: CA-PFIZER INC-2013195454

PATIENT
  Sex: 0

DRUGS (1)
  1. PROPANOLOL HCL [Suspect]
     Indication: HAEMANGIOMA
     Dosage: UNK
     Route: 048

REACTIONS (2)
  - Convulsion [Recovered/Resolved]
  - Hypoglycaemia [Recovered/Resolved]
